FAERS Safety Report 18030391 (Version 1)
Quarter: 2020Q3

REPORT INFORMATION
  Report Type: Spontaneous
  Country: US (occurrence: US)
  Receive Date: 20200715
  Receipt Date: 20200715
  Transmission Date: 20201103
  Serious: No
  Sender: FDA-Public Use
  Company Number: US-OPTINOSE US, INC-2020OPT000374

PATIENT
  Age: 56 Year
  Sex: Female

DRUGS (1)
  1. XHANCE [Suspect]
     Active Substance: FLUTICASONE PROPIONATE
     Indication: NASAL POLYPS
     Route: 045
     Dates: start: 20200411, end: 20200412

REACTIONS (3)
  - Rhinalgia [Recovering/Resolving]
  - Nasal congestion [Recovering/Resolving]
  - Nasal mucosal disorder [Recovering/Resolving]

NARRATIVE: CASE EVENT DATE: 20200411
